FAERS Safety Report 24585487 (Version 3)
Quarter: 2024Q4

REPORT INFORMATION
  Report Type: Report from Study
  Country: DE (occurrence: DE)
  Receive Date: 20241106
  Receipt Date: 20241114
  Transmission Date: 20250114
  Serious: No
  Sender: ROCHE
  Company Number: DE-ML39632-2347600-0

PATIENT
  Age: 27 Year
  Sex: Female
  Weight: 58 kg

DRUGS (27)
  1. OCREVUS [Suspect]
     Active Substance: OCRELIZUMAB
     Indication: Relapsing multiple sclerosis
     Route: 042
     Dates: start: 20190514, end: 20190528
  2. OCREVUS [Suspect]
     Active Substance: OCRELIZUMAB
     Route: 042
     Dates: start: 20191202
  3. DIETARY SUPPLEMENT\HERBALS [Concomitant]
     Active Substance: DIETARY SUPPLEMENT\HERBALS
     Indication: Headache
     Dosage: DEFINITION OF THE INTERVAL: AS REQUIRED
     Dates: start: 20240513, end: 20240520
  4. DIETARY SUPPLEMENT\HERBALS [Concomitant]
     Active Substance: DIETARY SUPPLEMENT\HERBALS
     Indication: Ear pain
  5. AMOXICILLIN\CLAVULANIC ACID [Concomitant]
     Active Substance: AMOXICILLIN\CLAVULANIC ACID
     Indication: Sinus pain
     Route: 048
     Dates: start: 20240614, end: 20240620
  6. PFIZER-BIONTECH COVID-19 VACCINE [Concomitant]
     Active Substance: TOZINAMERAN
     Indication: COVID-19 prophylaxis
     Route: 030
     Dates: start: 20211201, end: 20211201
  7. PFIZER-BIONTECH COVID-19 VACCINE [Concomitant]
     Active Substance: TOZINAMERAN
     Route: 030
     Dates: start: 20210519, end: 20210519
  8. PFIZER-BIONTECH COVID-19 VACCINE [Concomitant]
     Active Substance: TOZINAMERAN
     Route: 030
     Dates: start: 20210408, end: 20210408
  9. HERBALS [Concomitant]
     Active Substance: HERBALS
     Indication: Chronic sinusitis
     Route: 042
     Dates: start: 202309, end: 202309
  10. BUDESONIDE [Concomitant]
     Active Substance: BUDESONIDE
     Indication: Chronic sinusitis
     Route: 045
     Dates: start: 20231012, end: 20231123
  11. HYSAN [HYALURONATE SODIUM] [Concomitant]
     Indication: Chronic sinusitis
     Route: 045
     Dates: start: 202309, end: 202310
  12. PANTOPRAZOLE [Concomitant]
     Active Substance: PANTOPRAZOLE
     Route: 048
     Dates: start: 20240820, end: 20240829
  13. OFLOXACIN [Concomitant]
     Active Substance: OFLOXACIN
     Indication: Ocular hyperaemia
     Dates: start: 20240405, end: 20240412
  14. RHINIVICT NASAL [Concomitant]
     Indication: Bacterial infection
     Dosage: DEFINITION OF THE INTERVAL: AS REQUIRED
     Route: 045
     Dates: start: 20240321, end: 20240326
  15. XYLOMETAZOLINE HYDROCHLORIDE [Concomitant]
     Active Substance: XYLOMETAZOLINE HYDROCHLORIDE
     Indication: Chronic sinusitis
     Dosage: DEFINITION OF THE INTERVAL: AS REQUIRED
     Route: 045
     Dates: start: 202309, end: 202310
  16. XYLOMETAZOLINE HYDROCHLORIDE [Concomitant]
     Active Substance: XYLOMETAZOLINE HYDROCHLORIDE
     Dosage: DEFINITION OF THE INTERVAL: AS REQUIRED
     Dates: start: 20240513, end: 20240520
  17. SINUPRET ACUTE [Concomitant]
     Indication: Chronic sinusitis
     Route: 048
     Dates: start: 20231230, end: 20240108
  18. PREDNISOLONE [Concomitant]
     Active Substance: PREDNISOLONE
     Indication: Surgery
     Route: 048
     Dates: start: 20240130, end: 20240208
  19. PREDNISOLONE [Concomitant]
     Active Substance: PREDNISOLONE
     Indication: Otitis media
     Route: 048
     Dates: start: 20240820, end: 20240826
  20. PREDNISOLONE [Concomitant]
     Active Substance: PREDNISOLONE
     Indication: Nasal congestion
     Route: 048
     Dates: start: 20240827, end: 20240829
  21. DESLORATADINE [Concomitant]
     Active Substance: DESLORATADINE
     Indication: Chronic sinusitis
     Route: 048
     Dates: start: 20231012, end: 20231123
  22. DYMISTA [Concomitant]
     Active Substance: AZELASTINE HYDROCHLORIDE\FLUTICASONE PROPIONATE
     Indication: Chronic sinusitis
     Route: 045
     Dates: start: 20240130
  23. INFECTOCIPROCORT [Concomitant]
     Indication: Otitis media
     Dates: start: 20240806, end: 20240809
  24. INFECTOCIPROCORT [Concomitant]
     Indication: Surgery
  25. OMNI BIOTIC 10 AAD [Concomitant]
     Indication: Abdominal pain upper
     Dosage: DEFINITION OF THE INTERVAL: AS REQUIRED
     Route: 048
     Dates: start: 20240321, end: 20240326
  26. MOMENTA [MOMETASONE FUROATE] [Concomitant]
     Indication: Surgery
     Route: 045
     Dates: start: 20240607
  27. HEXAL [MIDAZOLAM HYDROCHLORIDE] [Concomitant]
     Indication: Bacterial infection
     Route: 048
     Dates: start: 20240321, end: 20240326

REACTIONS (1)
  - Herpes virus infection [Recovered/Resolved with Sequelae]

NARRATIVE: CASE EVENT DATE: 20241001
